FAERS Safety Report 6626876-5 (Version None)
Quarter: 2010Q1

REPORT INFORMATION
  Report Type: 
  Country: None (occurrence: None)
  Receive Date: 20100311
  Receipt Date: 20100303
  Transmission Date: 20100710
  Serious: Yes (Other)
  Sender: FDA-Public Use
  Company Number: US-RB-004425-10

PATIENT
  Age: 27 Year
  Sex: Male

DRUGS (1)
  1. MUCINEX D [Suspect]
     Dosage: TOOK ONE DOSE OF PRODUCT
     Route: 048
     Dates: start: 20100303

REACTIONS (8)
  - ASTHMA [None]
  - CHEST DISCOMFORT [None]
  - DIZZINESS [None]
  - INSOMNIA [None]
  - MYDRIASIS [None]
  - PYREXIA [None]
  - URTICARIA [None]
  - WHEEZING [None]
